FAERS Safety Report 6307526-4 (Version None)
Quarter: 2009Q3

REPORT INFORMATION
  Report Type: 
  Country: None (occurrence: None)
  Receive Date: 20090813
  Receipt Date: 20090810
  Transmission Date: 20100115
  Serious: Yes (Death, Other)
  Sender: FDA-Public Use
  Company Number: US-TEVA-205460USA

PATIENT
  Sex: Male

DRUGS (8)
  1. MERCAPTOPURINE [Suspect]
     Indication: INFLAMMATORY BOWEL DISEASE
     Dates: start: 19980901, end: 20070101
  2. MERCAPTOPURINE [Suspect]
     Indication: COLITIS ULCERATIVE
  3. INFLIXIMAB [Suspect]
     Indication: INFLAMMATORY BOWEL DISEASE
     Dates: start: 20020501, end: 20061101
  4. INFLIXIMAB [Suspect]
     Indication: COLITIS ULCERATIVE
  5. ADALIMUMAB [Suspect]
     Indication: INFLAMMATORY BOWEL DISEASE
     Dates: start: 20061101, end: 20070601
  6. ADALIMUMAB [Suspect]
     Indication: COLITIS ULCERATIVE
  7. PREDNISONE [Concomitant]
     Indication: INFLAMMATORY BOWEL DISEASE
     Dates: start: 19980901
  8. PREDNISONE [Concomitant]
     Indication: COLITIS ULCERATIVE

REACTIONS (1)
  - HEPATOSPLENIC T-CELL LYMPHOMA [None]
